FAERS Safety Report 10113473 (Version 1)
Quarter: 2014Q2

REPORT INFORMATION
  Report Type: Spontaneous
  Country: US (occurrence: US)
  Receive Date: 20140425
  Receipt Date: 20140425
  Transmission Date: 20141212
  Serious: Yes (Hospitalization)
  Sender: FDA-Public Use
  Company Number: US-BAYER-2014-059728

PATIENT
  Age: 22 Year
  Sex: Female
  Weight: 68 kg

DRUGS (16)
  1. YAZ [Suspect]
  2. BUTALBITAL [Concomitant]
     Indication: HEADACHE
     Dosage: 100 MG, UNK
     Route: 048
  3. GABAPENTIN [Concomitant]
     Dosage: 600 MG, UNK
     Route: 048
  4. MS CONTIN [Concomitant]
     Dosage: 150 MG, UNK
     Route: 048
  5. MSIR [Concomitant]
     Indication: BREAKTHROUGH PAIN
     Dosage: 15 MG, UNK
     Route: 048
  6. SENNA [Concomitant]
     Route: 048
  7. CEFEPIME [Concomitant]
     Dosage: 2 G, UNK
     Route: 042
     Dates: start: 20090101
  8. DIFLUCAN [Concomitant]
     Dosage: 200 MG, UNK
     Route: 042
     Dates: start: 20090101
  9. VANCOMYCIN [Concomitant]
     Dosage: 1 G, UNK
     Route: 042
     Dates: start: 20090101
  10. ZOFRAN [Concomitant]
     Indication: NAUSEA
     Dosage: 8 MG, UNK
     Route: 048
     Dates: start: 20090101
  11. PEPCID [Concomitant]
     Dosage: 20 MG, UNK
     Route: 048
     Dates: start: 20090102
  12. NEUPOGEN [Concomitant]
     Dosage: 300 MG, UNK
     Route: 058
     Dates: start: 20090102
  13. NYSTATIN [Concomitant]
     Dosage: UNK
     Dates: start: 20090102
  14. CIPRO [Concomitant]
     Dosage: 500 MG, UNK
     Route: 048
     Dates: start: 20090105
  15. FLUCONAZOLE [Concomitant]
     Dosage: 100 MG, UNK
     Route: 048
  16. DILAUDID [Concomitant]
     Dosage: UNK
     Dates: start: 20090130

REACTIONS (1)
  - Deep vein thrombosis [None]
